FAERS Safety Report 8391592-9 (Version None)
Quarter: 2012Q1

REPORT INFORMATION
  Report Type: 
  Country: None (occurrence: None)
  Receive Date: 20120323
  Receipt Date: 20110421
  Transmission Date: 20120608
  Serious: Yes (Other)
  Sender: FDA-Public Use
  Company Number: 163-21880-11033419

PATIENT
  Age: 64 Year
  Sex: Female

DRUGS (2)
  1. REVLIMID [Suspect]
     Indication: MULTIPLE MYELOMA
     Dosage: 10 MG, DAILY X28 DAYS, PO ; 5 MG, DAILY X28 DAYS, PO
     Route: 048
     Dates: start: 20110329
  2. REVLIMID [Suspect]
     Indication: MULTIPLE MYELOMA
     Dosage: 10 MG, DAILY X28 DAYS, PO ; 5 MG, DAILY X28 DAYS, PO
     Route: 048
     Dates: start: 20101101, end: 20110307

REACTIONS (2)
  - COUGH [None]
  - LOWER RESPIRATORY TRACT INFECTION FUNGAL [None]
